FAERS Safety Report 8205544-2 (Version None)
Quarter: 2012Q1

REPORT INFORMATION
  Report Type: 
  Country: None (occurrence: None)
  Receive Date: 20120313
  Receipt Date: 20120228
  Transmission Date: 20120608
  Serious: Yes (Death)
  Sender: FDA-Public Use
  Company Number: MX-ELI_LILLY_AND_COMPANY-MX201202008470

PATIENT
  Age: 62 Year
  Sex: Female

DRUGS (5)
  1. ZYPREXA [Suspect]
     Dosage: 2.5 MG, OTHER
     Route: 065
     Dates: start: 20111101
  2. ZYPREXA [Suspect]
     Indication: MANIA
     Route: 065
  3. BIPERIDEN HYDROCHLORIDE TAB [Concomitant]
     Dosage: 1 MG, QD
  4. CLONAZEPAM [Concomitant]
     Dosage: 2 MG, QD
     Dates: start: 20020101
  5. DEPAKENE [Concomitant]
     Dosage: 250 MG, OTHER

REACTIONS (2)
  - MYOCARDIAL INFARCTION [None]
  - INAPPROPRIATE SCHEDULE OF DRUG ADMINISTRATION [None]
